FAERS Safety Report 8428904-3 (Version None)
Quarter: 2012Q2

REPORT INFORMATION
  Report Type: 
  Country: None (occurrence: None)
  Receive Date: 20120612
  Receipt Date: 20120605
  Transmission Date: 20120825
  Serious: Yes (Death)
  Sender: FDA-Public Use
  Company Number: JP-SHIRE-ALL1-2012-02642

PATIENT
  Age: 76 Year
  Sex: Female

DRUGS (16)
  1. AMLODIPINE [Concomitant]
     Indication: HYPERTENSION
     Dosage: 5 MG, UNKNOWN
     Route: 048
  2. DOPS [Concomitant]
     Indication: PROPHYLAXIS
     Dosage: 300 MG, 1X/WEEK (DURING DIALYSIS)
     Route: 048
  3. FUROSEMIDE [Concomitant]
     Indication: DIURETIC THERAPY
     Dosage: 240 MG, UNKNOWN
     Route: 048
  4. BASEN [Concomitant]
     Indication: DIABETES MELLITUS
     Dosage: 0.9 MG, UNKNOWN
     Route: 048
  5. ALOSENN                            /00476901/ [Concomitant]
     Indication: CONSTIPATION
     Dosage: 1 G, UNKNOWN
     Route: 048
  6. ANALGESICS [Concomitant]
     Indication: SPINAL COMPRESSION FRACTURE
     Dosage: UNK, UNKNOWN
     Route: 048
     Dates: start: 20120102
  7. LANSOPRAZOLE [Concomitant]
     Indication: GASTRITIS
     Dosage: 15 MG, UNKNOWN
     Route: 048
  8. CINAL [Concomitant]
     Indication: HAEMORRHAGE SUBCUTANEOUS
     Dosage: 2 G, UNKNOWN
     Route: 048
  9. PROMAC                             /00024401/ [Concomitant]
     Indication: GASTRITIS
     Dosage: 300 MG, UNKNOWN
     Route: 048
  10. EPOGEN [Concomitant]
     Indication: NEPHROGENIC ANAEMIA
     Dosage: 3000 IU, 1X/WEEK (AFTER DIALYSIS)
     Route: 041
  11. OXAROL [Concomitant]
     Indication: PRODUCT USED FOR UNKNOWN INDICATION
     Dosage: 7.5 MG, 1X/WEEK
     Route: 041
     Dates: start: 20100830
  12. LANTHANUM CARBONATE [Suspect]
     Indication: HYPERPHOSPHATAEMIA
     Dosage: 750 MG, OTHER (IMMEDIATELY AFTER MEALS)
     Route: 048
     Dates: start: 20090413, end: 20090816
  13. LANTHANUM CARBONATE [Suspect]
     Dosage: 1500 MG, 1X/DAY:QD
     Route: 048
     Dates: start: 20090817, end: 20111231
  14. CALCIUM CARBONATE [Concomitant]
     Indication: HYPERPHOSPHATAEMIA
     Dosage: 1500 MG, UNKNOWN
     Route: 048
     Dates: start: 20040710
  15. RISUMIC [Concomitant]
     Indication: PROPHYLAXIS
     Dosage: 30 MG, 1X/WEEK (DURING DIALYSIS)
     Route: 048
  16. SENNOSIDE                          /00571901/ [Concomitant]
     Indication: CONSTIPATION
     Dosage: 24 MG, UNKNOWN
     Route: 048

REACTIONS (2)
  - PERITONITIS SCLEROSING [None]
  - SHOCK HAEMORRHAGIC [None]
